FAERS Safety Report 6032808-3 (Version None)
Quarter: 2009Q1

REPORT INFORMATION
  Report Type: 
  Country: None (occurrence: None)
  Receive Date: 20090105
  Receipt Date: 20060512
  Transmission Date: 20090719
  Serious: Yes (Hospitalization)
  Sender: FDA-Public Use
  Company Number: BDI-008248

PATIENT
  Age: 51 Year
  Sex: Female

DRUGS (2)
  1. MULTIHANCE [Suspect]
     Indication: ANGIOGRAM
     Dosage: 30ML QD INTRAVENOUS
     Route: 042
     Dates: start: 20060511, end: 20060511
  2. MULTIHANCE [Suspect]
     Indication: RENAL ARTERY STENOSIS
     Dosage: 30ML QD INTRAVENOUS
     Route: 042
     Dates: start: 20060511, end: 20060511

REACTIONS (1)
  - ANAPHYLACTOID REACTION [None]
